FAERS Safety Report 6916011-8 (Version None)
Quarter: 2010Q3

REPORT INFORMATION
  Report Type: 
  Country: None (occurrence: None)
  Receive Date: 20100810
  Receipt Date: 20100726
  Transmission Date: 20110219
  Serious: Yes (Hospitalization)
  Sender: FDA-Public Use
  Company Number: FR-JNJFOC-20100801796

PATIENT
  Sex: Female

DRUGS (7)
  1. IXPRIM [Suspect]
     Indication: PRODUCT USED FOR UNKNOWN INDICATION
     Route: 048
  2. RABEPRAZOLE SODIUM [Suspect]
     Indication: PRODUCT USED FOR UNKNOWN INDICATION
     Route: 065
  3. FLUINDIONE [Concomitant]
     Indication: ATRIAL FIBRILLATION
  4. CORDARONE [Concomitant]
     Indication: ATRIAL FIBRILLATION
  5. CORTANCYL [Concomitant]
     Indication: POLYMYALGIA RHEUMATICA
  6. STRONTIUM RANELATE [Concomitant]
  7. CACIT D3 [Concomitant]

REACTIONS (1)
  - THROMBOCYTOPENIC PURPURA [None]
